FAERS Safety Report 6957556-4 (Version None)
Quarter: 2010Q3

REPORT INFORMATION
  Report Type: 
  Country: None (occurrence: None)
  Receive Date: 20100831
  Receipt Date: 20100816
  Transmission Date: 20110219
  Serious: Yes (Hospitalization, Other)
  Sender: FDA-Public Use
  Company Number: PHHY2010JP54530

PATIENT
  Sex: Female

DRUGS (8)
  1. DIOVAN [Suspect]
     Dosage: UNK
     Route: 048
     Dates: start: 20080602
  2. ALDACTONE [Suspect]
     Dosage: UNK
     Route: 048
     Dates: start: 20080602, end: 20090717
  3. CONIEL [Concomitant]
     Indication: HYPERTENSION
     Dosage: 04 MG
     Route: 048
     Dates: start: 20010312
  4. AMLODIPINE BESYLATE [Concomitant]
     Indication: HYPERTENSION
     Dosage: 2.5 MG
     Route: 048
  5. DEPAKENE [Concomitant]
     Dosage: 1200 MG
     Route: 048
  6. PRONON [Concomitant]
     Dosage: 150 MG
     Route: 048
  7. WARFARIN SODIUM [Concomitant]
     Dosage: 200 MG
     Route: 048
     Dates: start: 20090717
  8. ALOSITOL [Concomitant]
     Dosage: 200 MG
     Route: 048
     Dates: start: 20090717

REACTIONS (2)
  - DEHYDRATION [None]
  - HYPERKALAEMIA [None]
